FAERS Safety Report 4582032-6 (Version None)
Quarter: 2005Q1

REPORT INFORMATION
  Report Type: 
  Country: None (occurrence: None)
  Receive Date: 20050119
  Receipt Date: 20040613
  Transmission Date: 20050727
  Serious: Yes (Other)
  Sender: FDA-Public Use
  Company Number: A03200401967

PATIENT
  Age: 69 Year
  Sex: Female
  Weight: 47.6277 kg

DRUGS (1)
  1. PLAVIX [Suspect]
     Indication: STENT PLACEMENT
     Dosage: 75 MG QD- ORAL
     Route: 048
     Dates: start: 20020101, end: 20030901

REACTIONS (3)
  - DRY MOUTH [None]
  - DYSPNOEA [None]
  - GASTROINTESTINAL ULCER [None]
